FAERS Safety Report 11971707 (Version 1)
Quarter: 2016Q1

REPORT INFORMATION
  Report Type: Spontaneous
  Country: US (occurrence: US)
  Receive Date: 20160128
  Receipt Date: 20160128
  Transmission Date: 20160526
  Serious: Yes (Death)
  Sender: FDA-Public Use
  Company Number: US-INSYS THERAPEUTICS, INC-INS201601-000032

PATIENT
  Age: 58 Year
  Sex: Male

DRUGS (3)
  1. SUBSYS [Suspect]
     Active Substance: FENTANYL
     Indication: BREAKTHROUGH PAIN
     Dates: start: 20151214
  2. SUBSYS [Suspect]
     Active Substance: FENTANYL
     Indication: METASTASES TO CENTRAL NERVOUS SYSTEM
  3. SUBSYS [Suspect]
     Active Substance: FENTANYL
     Indication: LUNG NEOPLASM MALIGNANT

REACTIONS (1)
  - Neoplasm progression [Fatal]

NARRATIVE: CASE EVENT DATE: 20160112
